FAERS Safety Report 8825245 (Version 1)
Quarter: 2012Q4

REPORT INFORMATION
  Report Type: 
  Country: US (occurrence: US)
  Receive Date: 20121004
  Receipt Date: 20121004
  Transmission Date: 20130627
  Serious: Yes (Other)
  Sender: FDA-Public Use
  Company Number: US-ROCHE-1131115

PATIENT
  Sex: Male

DRUGS (4)
  1. RITUXAN [Suspect]
     Indication: IDIOPATHIC THROMBOCYTOPENIC PURPURA
     Route: 065
     Dates: start: 20011220, end: 20020103
  2. TYLENOL [Concomitant]
     Route: 048
     Dates: start: 20011220
  3. BENADRYL [Concomitant]
     Route: 042
     Dates: start: 20011220
  4. PREDNISONE [Concomitant]

REACTIONS (2)
  - Platelet count decreased [Unknown]
  - Dizziness [Unknown]
